FAERS Safety Report 24695982 (Version 1)
Quarter: 2024Q4

REPORT INFORMATION
  Report Type: Spontaneous
  Country: US (occurrence: US)
  Receive Date: 20241204
  Receipt Date: 20241204
  Transmission Date: 20250115
  Serious: Yes (Other)
  Sender: LUPIN
  Company Number: US-LUPIN PHARMACEUTICALS INC.-2024-11594

PATIENT
  Age: 64 Year
  Sex: Male

DRUGS (2)
  1. SEVELAMER HYDROCHLORIDE [Suspect]
     Active Substance: SEVELAMER HYDROCHLORIDE
     Indication: Blood phosphorus increased
     Dosage: UNK
     Route: 065
  2. HEPARIN [Concomitant]
     Active Substance: HEPARIN SODIUM
     Indication: Atrial flutter
     Dosage: UNK DRIP
     Route: 065

REACTIONS (2)
  - Colitis [Unknown]
  - Large intestinal ulcer [Unknown]
